FAERS Safety Report 5889135-4 (Version None)
Quarter: 2008Q3

REPORT INFORMATION
  Report Type: 
  Country: None (occurrence: None)
  Receive Date: 20080917
  Receipt Date: 20080902
  Transmission Date: 20090109
  Serious: Yes (Other)
  Sender: FDA-Public Use
  Company Number: DSJ-2008-10977

PATIENT
  Age: 8 Decade
  Sex: Female

DRUGS (9)
  1. OLMESARTAN MEDOXOMIL [Suspect]
     Indication: HYPERTENSION
     Dosage: 10 MG, PER ORAL;  20 MG, PER ORAL
     Route: 048
     Dates: start: 20050620, end: 20061001
  2. OLMESARTAN MEDOXOMIL [Suspect]
     Indication: HYPERTENSION
     Dosage: 10 MG, PER ORAL;  20 MG, PER ORAL
     Route: 048
     Dates: start: 20061001, end: 20071101
  3. ASPIRIN [Suspect]
     Dosage: PER ORAL
     Route: 048
     Dates: start: 20050501, end: 20070301
  4. VITAMIN D (ERGOCALCIFEROL) (CAPSULE) (ERGOCALCIFEROL) [Concomitant]
  5. LASIX [Concomitant]
  6. FLUITRAN (TRICHLORMETHIAZIDE) (TABLET) (TRICHLORMETHIAZIDE) [Concomitant]
  7. AMLODIPINE BESYLATE [Concomitant]
  8. WYTENS (GUANABENZ ACETATE)(TABLET)(GUANABENZ ACETATE) [Concomitant]
  9. AMOBAN (ZOPICLONE )(TABLET )(ZOPI CLONE) [Concomitant]

REACTIONS (2)
  - HAEMODIALYSIS [None]
  - THROMBOCYTOPENIA [None]
